FAERS Safety Report 19064930 (Version 3)
Quarter: 2021Q1

REPORT INFORMATION
  Report Type: Spontaneous
  Country: US (occurrence: US)
  Receive Date: 20210326
  Receipt Date: 20210331
  Transmission Date: 20210420
  Serious: No
  Sender: FDA-Public Use
  Company Number: US-SA-2021SA087467

PATIENT
  Age: 74 Year
  Sex: Male

DRUGS (2)
  1. METFORMIN [Concomitant]
     Active Substance: METFORMIN HYDROCHLORIDE
     Dosage: 1000 MG, BID
     Route: 065
  2. LANTUS [Suspect]
     Active Substance: INSULIN GLARGINE
     Dosage: 40 IU, BID (40 UNITS IN THE MORNING, AND 40 UNITS AT NIGHT)
     Route: 065

REACTIONS (3)
  - Device issue [Unknown]
  - Blood glucose fluctuation [Unknown]
  - Inappropriate schedule of product administration [Unknown]
